FAERS Safety Report 4656499-9 (Version None)
Quarter: 2005Q2

REPORT INFORMATION
  Report Type: 
  Country: None (occurrence: None)
  Receive Date: 20050504
  Receipt Date: 20050420
  Transmission Date: 20051028
  Serious: Yes (Hospitalization)
  Sender: FDA-Public Use
  Company Number: WAES 0504USA03575

PATIENT
  Age: 74 Year
  Sex: Female

DRUGS (8)
  1. ZETIA [Suspect]
     Indication: HYPERLIPIDAEMIA
     Dosage: PO
     Route: 048
     Dates: start: 20041206, end: 20050131
  2. ATORVASTATIN CALCIUM [Suspect]
     Indication: HYPERLIPIDAEMIA
     Dates: start: 20041108
  3. CALCIUM ASCORBATE [Concomitant]
  4. CALCIUM CITRATE [Concomitant]
  5. CHONDROITIN SULFATE SODIUM (+) LEVOTHYROXINE SODIUM [Concomitant]
  6. NAPROXEN [Concomitant]
  7. VITAMIN E [Concomitant]
  8. VITAMINS [Concomitant]

REACTIONS (3)
  - ABASIA [None]
  - MUSCULAR WEAKNESS [None]
  - VIRAL INFECTION [None]
